FAERS Safety Report 22774451 (Version 4)
Quarter: 2024Q1

REPORT INFORMATION
  Report Type: Spontaneous
  Country: IT (occurrence: IT)
  Receive Date: 20230802
  Receipt Date: 20240110
  Transmission Date: 20240409
  Serious: Yes (Death, Other)
  Sender: FDA-Public Use
  Company Number: IT-CELLTRION INC.-2023IT015138

PATIENT

DRUGS (3)
  1. RITUXIMAB [Suspect]
     Active Substance: RITUXIMAB
     Indication: Chemotherapy
     Dosage: 375 MG
     Route: 042
     Dates: start: 20220810, end: 20221027
  2. COPANLISIB [Suspect]
     Active Substance: COPANLISIB
     Indication: Chemotherapy
     Dosage: 60 MG
     Route: 042
     Dates: start: 20220810, end: 20221027
  3. BENDAMUSTINE HYDROCHLORIDE [Suspect]
     Active Substance: BENDAMUSTINE HYDROCHLORIDE
     Indication: Chemotherapy
     Dosage: 105 MG/M2, 3 CYCLES
     Route: 042
     Dates: start: 20220810, end: 20221028

REACTIONS (3)
  - Cachexia [Fatal]
  - Pyrexia [Fatal]
  - Sepsis [Recovered/Resolved]

NARRATIVE: CASE EVENT DATE: 20221028
